FAERS Safety Report 8329816-6 (Version None)
Quarter: 2012Q2

REPORT INFORMATION
  Report Type: 
  Country: None (occurrence: None)
  Receive Date: 20120502
  Receipt Date: 20091105
  Transmission Date: 20120825
  Serious: No
  Sender: FDA-Public Use
  Company Number: US-TEVA-2009012138

PATIENT
  Sex: Female
  Weight: 89.892 kg

DRUGS (2)
  1. NUVIGIL [Suspect]
     Indication: SLEEP APNOEA SYNDROME
     Dosage: 37.5 MILLIGRAM;
     Route: 048
     Dates: start: 20091101, end: 20091101
  2. NUVIGIL [Suspect]
     Indication: SOMNOLENCE

REACTIONS (4)
  - PSYCHOMOTOR HYPERACTIVITY [None]
  - CHEST PAIN [None]
  - TREMOR [None]
  - AGITATION [None]
